FAERS Safety Report 12535466 (Version 1)
Quarter: 2016Q3

REPORT INFORMATION
  Report Type: Spontaneous
  Country: US (occurrence: None)
  Receive Date: 20160706
  Receipt Date: 20160706
  Transmission Date: 20161109
  Serious: No
  Sender: FDA-Public Use
  Company Number: None

PATIENT
  Age: 68 Year
  Sex: Female
  Weight: 58.97 kg

DRUGS (5)
  1. OXYBUTYNIN CL ER 5 MG TABLET, 5 MG KRAMER URBAN [Suspect]
     Active Substance: OXYBUTYNIN CHLORIDE
     Indication: URINARY INCONTINENCE
     Dosage: 30 TABLET(S) ONCE A DAY
     Dates: start: 20160622, end: 20160703
  2. MAXZIDE [Concomitant]
     Active Substance: HYDROCHLOROTHIAZIDE\TRIAMTERENE
  3. TARKA [Concomitant]
     Active Substance: TRANDOLAPRIL\VERAPAMIL HYDROCHLORIDE
  4. MULTI VITS [Concomitant]
     Active Substance: VITAMINS
  5. HRT [Concomitant]
     Active Substance: UNSPECIFIED INGREDIENT

REACTIONS (7)
  - Cough [None]
  - Sinus disorder [None]
  - Dizziness [None]
  - Vision blurred [None]
  - Urinary incontinence [None]
  - Gait disturbance [None]
  - Headache [None]

NARRATIVE: CASE EVENT DATE: 20160623
